FAERS Safety Report 8334413-2 (Version None)
Quarter: 2012Q2

REPORT INFORMATION
  Report Type: 
  Country: None (occurrence: None)
  Receive Date: 20120503
  Receipt Date: 20110321
  Transmission Date: 20120825
  Serious: No
  Sender: FDA-Public Use
  Company Number: US-BAUSCH-2011BL001796

PATIENT
  Age: 67 Year
  Sex: Female
  Weight: 48 kg

DRUGS (2)
  1. PROPYLENE GLYCOL [Suspect]
     Indication: DRY EYE
     Route: 047
     Dates: start: 20110201, end: 20110307
  2. LOTEMAX [Suspect]
     Indication: EYE INFLAMMATION
     Route: 047
     Dates: start: 20110307, end: 20110307

REACTIONS (1)
  - REACTION TO PRESERVATIVES [None]
